FAERS Safety Report 9046571 (Version 1)
Quarter: 2013Q1

REPORT INFORMATION
  Report Type: Spontaneous
  Country: GB (occurrence: GB)
  Receive Date: 20130203
  Receipt Date: 20130203
  Transmission Date: 20140127
  Serious: Yes (Other)
  Sender: FDA-Public Use
  Company Number: GB-TEVA-382448ISR

PATIENT
  Age: 56 Year
  Sex: Male
  Weight: 84 kg

DRUGS (4)
  1. OLANZAPINE [Suspect]
     Indication: SCHIZOPHRENIA
     Dosage: MAXIMUM 20MG.
     Route: 048
     Dates: start: 20120727
  2. SIMVASTATIN [Concomitant]
  3. BENDROFLUMETHIAZIDE [Concomitant]
  4. ZOPICLONE [Concomitant]

REACTIONS (4)
  - Type 2 diabetes mellitus [Unknown]
  - Thirst [Unknown]
  - Blood glucose increased [Unknown]
  - Polyuria [Unknown]
